FAERS Safety Report 8677319 (Version 7)
Quarter: 2014Q3

REPORT INFORMATION
  Report Type: Spontaneous
  Country: US (occurrence: US)
  Receive Date: 20120723
  Receipt Date: 20140926
  Transmission Date: 20150326
  Serious: Yes (Hospitalization, Other)
  Sender: FDA-Public Use
  Company Number: US-009507513-1207USA003721

PATIENT
  Sex: Female
  Weight: 69.84 kg

DRUGS (4)
  1. FOSAMAX [Suspect]
     Active Substance: ALENDRONATE SODIUM
     Indication: OSTEOPOROSIS
     Dosage: 70 MG, QW
     Route: 048
  2. FOSAMAX [Suspect]
     Active Substance: ALENDRONATE SODIUM
     Indication: OSTEOPENIA
  3. ALENDRONATE SODIUM. [Suspect]
     Active Substance: ALENDRONATE SODIUM
     Indication: OSTEOPOROSIS
     Dosage: 70 MG, QW
     Route: 048
     Dates: start: 20080306, end: 20110622
  4. FOSAMAX [Suspect]
     Active Substance: ALENDRONATE SODIUM
     Indication: OSTEOPOROSIS
     Dosage: 70 MG, QW
     Route: 048
     Dates: start: 20030626, end: 2008

REACTIONS (19)
  - Alveolar osteitis [Unknown]
  - Hypokalaemia [Unknown]
  - Gastrooesophageal reflux disease [Unknown]
  - Insomnia [Unknown]
  - Catheterisation cardiac [Unknown]
  - Blood cholesterol increased [Unknown]
  - Intramedullary rod insertion [Unknown]
  - Surgery [Unknown]
  - Low turnover osteopathy [Unknown]
  - Anxiety [Not Recovered/Not Resolved]
  - Stress fracture [Recovered/Resolved with Sequelae]
  - Osteoarthritis [Unknown]
  - Tooth fracture [Unknown]
  - Tooth extraction [Unknown]
  - Dental implantation [Unknown]
  - Depression [Not Recovered/Not Resolved]
  - Pain [Unknown]
  - Cystitis interstitial [Unknown]
  - Gastritis [Unknown]

NARRATIVE: CASE EVENT DATE: 2000
